FAERS Safety Report 8228661-X (Version None)
Quarter: 2012Q1

REPORT INFORMATION
  Report Type: 
  Country: None (occurrence: None)
  Receive Date: 20120322
  Receipt Date: 20110309
  Transmission Date: 20120608
  Serious: Yes (Other)
  Sender: FDA-Public Use
  Company Number: US-BRISTOL-MYERS SQUIBB COMPANY-15506223

PATIENT
  Age: 79 Year
  Sex: Male

DRUGS (2)
  1. IRINOTECAN HCL [Suspect]
     Dosage: OFF THE TREATMENT FOR 5 WEEKS
  2. ERBITUX [Suspect]
     Indication: COLON CANCER METASTATIC
     Dosage: OFF THE TREATMENT FOR 5 WEEKS  BREAK FROM 20DEC10 TO 3JAN11
     Route: 042
     Dates: start: 20100728

REACTIONS (4)
  - SKIN FISSURES [None]
  - PRURITUS [None]
  - RASH [None]
  - OEDEMA [None]
